FAERS Safety Report 13728535 (Version 6)
Quarter: 2017Q3

REPORT INFORMATION
  Report Type: Report from Study
  Country: None (occurrence: BE)
  Receive Date: 20170707
  Receipt Date: 20170727
  Transmission Date: 20171127
  Serious: Yes (Hospitalization, Other)
  Sender: FDA-Public Use
  Company Number: BE-ABBVIE-14P-013-1246404-00

PATIENT
  Age: 64 Year
  Sex: Female

DRUGS (47)
  1. DUODOPA [Suspect]
     Active Substance: CARBIDOPA\LEVODOPA
     Dosage: AM = 3 ML, CONTIN DOSE = 1.4 ML/H DURING 16H, EXTRA DOSE = 1 ML
     Route: 050
     Dates: start: 20140507, end: 20140603
  2. DUODOPA [Suspect]
     Active Substance: CARBIDOPA\LEVODOPA
     Dosage: AM = 3 ML, CONTIN DOSE = 1.3 ML/H DURING 16H, EXTRA DOSE = 1 ML
     Route: 050
     Dates: start: 20140603, end: 20140911
  3. DUODOPA [Suspect]
     Active Substance: CARBIDOPA\LEVODOPA
     Dosage: AM DOSE= 3ML, CD= 1.4ML/H DURING 16HRS, ED=1 ML
     Route: 050
     Dates: start: 20140911, end: 20140922
  4. DUODOPA [Suspect]
     Active Substance: CARBIDOPA\LEVODOPA
     Dosage: AM = 3 ML, CD = 1.6 ML/H DRUING 16H, ED = 2 ML
     Route: 050
     Dates: start: 20150713, end: 20150713
  5. DUODOPA [Suspect]
     Active Substance: CARBIDOPA\LEVODOPA
     Dosage: AM=3ML; CD=1.6ML/HR DURING 16HRS; ED=2ML
     Route: 050
     Dates: start: 20150826, end: 20151022
  6. DUODOPA [Suspect]
     Active Substance: CARBIDOPA\LEVODOPA
     Dosage: AM=3ML; CD=1.9ML/HR DURING 16HRS; ED=2ML
     Route: 050
     Dates: start: 20160115, end: 20160116
  7. ISOBETADINE [Concomitant]
     Indication: PRODUCT USED FOR UNKNOWN INDICATION
  8. DUODOPA [Suspect]
     Active Substance: CARBIDOPA\LEVODOPA
     Dosage: AM = 3 ML, CONTIN DOSE = 1.2 ML/H DURING 16H, EXTRA DOSE = 0.5 ML
     Route: 050
     Dates: start: 20140423, end: 20140507
  9. DUODOPA [Suspect]
     Active Substance: CARBIDOPA\LEVODOPA
     Dosage: AM DOSE=3ML, CD=1.3ML/H FOR 16HRS AND ED=1ML
     Route: 050
     Dates: start: 20140922, end: 20141208
  10. DUODOPA [Suspect]
     Active Substance: CARBIDOPA\LEVODOPA
     Dosage: AM=3ML;CD=1.6ML/HR DURING 16HRS;ED=1.2ML
     Route: 050
     Dates: start: 20150609, end: 20150618
  11. DUODOPA [Suspect]
     Active Substance: CARBIDOPA\LEVODOPA
     Dosage: AM= 3.3 ML; CD= 2 ML/H DURING 16 HRS; ED= 2 ML
     Route: 050
     Dates: start: 20160401, end: 20160421
  12. DUODOPA [Suspect]
     Active Substance: CARBIDOPA\LEVODOPA
     Dosage: AM: 3.3ML; CD: 1.9ML/H FOR 16HRS; ED: 2ML
     Route: 050
     Dates: start: 2017, end: 20170202
  13. DUODOPA [Suspect]
     Active Substance: CARBIDOPA\LEVODOPA
     Dosage: AM: 3.3ML; CD: 1.9ML/H FOR 16HRS; ED: 1.5ML
     Route: 050
     Dates: start: 20170202, end: 20170329
  14. DUODOPA [Suspect]
     Active Substance: CARBIDOPA\LEVODOPA
     Dosage: AM= 3.3 ML; CD= 2.2 ML/H DURING 16 HRS; ED= 1.8 ML
     Route: 050
     Dates: start: 20170329, end: 20170421
  15. DUODOPA [Suspect]
     Active Substance: CARBIDOPA\LEVODOPA
     Dosage: AM = 2.5 ML, CD = 1.5 ML/H DURING 16H, ED 1 ML
     Route: 050
     Dates: start: 20150401, end: 20150609
  16. DUODOPA [Suspect]
     Active Substance: CARBIDOPA\LEVODOPA
     Dosage: AM=3ML; CD=1.8ML/HR DURING 16HRS;CD=2ML
     Route: 050
     Dates: start: 20151022, end: 20151112
  17. DUODOPA [Suspect]
     Active Substance: CARBIDOPA\LEVODOPA
     Dosage: AM= 3 ML; CD= 2.2 ML/H DURING 16 HRS; ED= 2 ML
     Route: 050
     Dates: start: 20160727, end: 20161104
  18. DUODOPA [Suspect]
     Active Substance: CARBIDOPA\LEVODOPA
     Dosage: MD= 3.3 ML; CD= 2.2 ML/H DURING 16 HRS; EDA= 1.6 ML
     Route: 050
     Dates: start: 20170714, end: 20170720
  19. THYROXINE [Concomitant]
     Active Substance: LEVOTHYROXINE
     Indication: PRODUCT USED FOR UNKNOWN INDICATION
  20. RIVOTRIL [Concomitant]
     Active Substance: CLONAZEPAM
     Indication: PRODUCT USED FOR UNKNOWN INDICATION
  21. SIMVASTATINE [Concomitant]
     Active Substance: SIMVASTATIN
     Indication: PRODUCT USED FOR UNKNOWN INDICATION
  22. FORMOTEROL FUMARATE 9 ?G + BUDESONIDE 320 ?G  / DOSE (SYMBICORT FORTE) [Concomitant]
     Indication: PRODUCT USED FOR UNKNOWN INDICATION
  23. DUODOPA [Suspect]
     Active Substance: CARBIDOPA\LEVODOPA
     Dosage: AM = 2.5 ML, CD = 1.5 ML/H DURING 16H, ED = 1 ML
     Route: 050
     Dates: start: 20141208, end: 20141216
  24. DUODOPA [Suspect]
     Active Substance: CARBIDOPA\LEVODOPA
     Route: 050
     Dates: start: 20150618, end: 20150624
  25. DUODOPA [Suspect]
     Active Substance: CARBIDOPA\LEVODOPA
     Dosage: AM=3ML; CD=2ML/H FOR 16HRS; ED=1.8ML
     Route: 050
     Dates: start: 20151112, end: 20151208
  26. DUODOPA [Suspect]
     Active Substance: CARBIDOPA\LEVODOPA
     Dosage: AM= 3.3 ML; CD= 2.2 ML/H DURING 16 HRS; ED= 1.5 ML
     Route: 050
     Dates: start: 20170426, end: 20170505
  27. DUODOPA [Suspect]
     Active Substance: CARBIDOPA\LEVODOPA
     Dosage: AM= 3.3 ML; CD= 2 ML/H DURING 16 HRS; ED= 1.5 ML
     Route: 050
     Dates: start: 20170505, end: 20170613
  28. DUODOPA [Suspect]
     Active Substance: CARBIDOPA\LEVODOPA
     Dosage: MD=3.3ML, CD=1.8ML/HR DURING 16HRS, EDA=1.5ML
     Route: 050
     Dates: start: 20170613, end: 20170714
  29. DUODOPA [Suspect]
     Active Substance: CARBIDOPA\LEVODOPA
     Dosage: MD= 3.3 ML; CD= 2.6 ML/H DURING 16 HRS; EDA= 1.3 ML
     Route: 050
     Dates: start: 20170725
  30. PROLOPA [Concomitant]
     Active Substance: BENSERAZIDE\LEVODOPA
     Indication: PRODUCT USED FOR UNKNOWN INDICATION
  31. DUODOPA [Suspect]
     Active Substance: CARBIDOPA\LEVODOPA
     Dosage: AM: 3.3ML; CD: 1.9ML/H FOR 16HRS; ED: 2ML
     Route: 050
     Dates: start: 20161104, end: 20170113
  32. DUODOPA [Suspect]
     Active Substance: CARBIDOPA\LEVODOPA
     Dosage: MD=3.3ML,CD=2.5ML/HR DURING 16HRS, EDA=1.5ML
     Route: 050
     Dates: start: 20170720, end: 20170725
  33. ZOLPIDEM [Concomitant]
     Active Substance: ZOLPIDEM\ZOLPIDEM TARTRATE
     Indication: PRODUCT USED FOR UNKNOWN INDICATION
  34. DUODOPA [Suspect]
     Active Substance: CARBIDOPA\LEVODOPA
     Indication: PARKINSON^S DISEASE
     Dosage: AM = 3.8 ML, CONTIN DOSE = 1.3 ML/H DURING 16H, EXTRA DOSE = 1 ML
     Route: 050
     Dates: start: 20140414, end: 20140423
  35. DUODOPA [Suspect]
     Active Substance: CARBIDOPA\LEVODOPA
     Dosage: AM 2.5 ML, CD 1.4 ML/H DURING 16H, ED 1 ML
     Route: 050
     Dates: start: 20141216, end: 20150401
  36. DUODOPA [Suspect]
     Active Substance: CARBIDOPA\LEVODOPA
     Dosage: AM =3ML; CD = 1.9ML/HR DURING 16HRS; ED= 1.8 ML
     Route: 050
     Dates: start: 20151208, end: 20160115
  37. DUODOPA [Suspect]
     Active Substance: CARBIDOPA\LEVODOPA
     Dosage: AM=3ML; CD=2ML/HR DURING 16HRS; ED=1.8ML
     Route: 050
     Dates: start: 20160202, end: 20160401
  38. DUODOPA [Suspect]
     Active Substance: CARBIDOPA\LEVODOPA
     Dosage: AM: 3.3ML; CD: 1.9ML/H FOR 16HRS; ED: 1.5ML
     Route: 050
     Dates: start: 20170113, end: 2017
  39. DUODOPA [Suspect]
     Active Substance: CARBIDOPA\LEVODOPA
     Dosage: AM=3ML; CD=1.6ML/HR DURING 16HRS; ED=1.4ML
     Route: 050
     Dates: start: 20150624, end: 20150702
  40. DUODOPA [Suspect]
     Active Substance: CARBIDOPA\LEVODOPA
     Dosage: AM=3ML; CD=1.6ML/HR DURING 16HRS; ED=1.6ML
     Route: 050
     Dates: start: 20150702, end: 20150713
  41. DUODOPA [Suspect]
     Active Substance: CARBIDOPA\LEVODOPA
     Dosage: AM= 3.3 ML; CD= 2.2 ML/H DURING 16 HRS; ED= 1.3 ML
     Route: 050
     Dates: start: 20170421, end: 20170426
  42. PANTOMED (PANTOPRAZOLE SODIUM) [Concomitant]
     Active Substance: PANTOPRAZOLE SODIUM
     Indication: PRODUCT USED FOR UNKNOWN INDICATION
  43. DUODOPA [Suspect]
     Active Substance: CARBIDOPA\LEVODOPA
     Dosage: AM DOSE=3ML, CD=1.7ML/H FOR 16HRS AND ED=2ML
     Route: 050
     Dates: start: 20150713, end: 20150722
  44. DUODOPA [Suspect]
     Active Substance: CARBIDOPA\LEVODOPA
     Dosage: AM DOSE=3ML, CD=1.6ML/H FOR 16HRS AND ED=2ML
     Route: 050
     Dates: start: 20150722, end: 20150826
  45. DUODOPA [Suspect]
     Active Substance: CARBIDOPA\LEVODOPA
     Dosage: AM=3ML; CD=2.1ML/HR DURING 16HRS; ED=2ML
     Route: 050
     Dates: start: 20160116, end: 20160202
  46. DUODOPA [Suspect]
     Active Substance: CARBIDOPA\LEVODOPA
     Dosage: AM= 3 ML; CD= 2 ML/H DURING 16 HRS; ED= 2 ML
     Route: 050
     Dates: start: 20160421, end: 20160727
  47. DIAZEPAM. [Concomitant]
     Active Substance: DIAZEPAM
     Indication: PRODUCT USED FOR UNKNOWN INDICATION

REACTIONS (31)
  - Balance disorder [Unknown]
  - Hallucination [Recovered/Resolved]
  - Posture abnormal [Unknown]
  - Speech disorder [Unknown]
  - Fall [Unknown]
  - Dizziness [Unknown]
  - Stoma site pain [Unknown]
  - Device connection issue [Recovered/Resolved]
  - Device alarm issue [Unknown]
  - Drug effect incomplete [Unknown]
  - Incorrect dose administered [Recovered/Resolved]
  - Freezing phenomenon [Not Recovered/Not Resolved]
  - Musculoskeletal stiffness [Unknown]
  - General physical health deterioration [Unknown]
  - Abdominal pain [Unknown]
  - Parkinsonism [Unknown]
  - Inappropriate schedule of drug administration [Unknown]
  - Muscle rigidity [Unknown]
  - Malaise [Unknown]
  - Confusional state [Unknown]
  - Dyskinesia [Not Recovered/Not Resolved]
  - Underdose [Unknown]
  - Extra dose administered [Recovering/Resolving]
  - Dysphagia [Unknown]
  - Granuloma [Not Recovered/Not Resolved]
  - Hypokinesia [Recovering/Resolving]
  - Blood pressure decreased [Unknown]
  - Medical device change [Recovered/Resolved]
  - Device leakage [Recovered/Resolved]
  - Parkinsonian gait [Unknown]
  - Discomfort [Unknown]

NARRATIVE: CASE EVENT DATE: 201706
